FAERS Safety Report 6999896-9 (Version None)
Quarter: 2010Q3

REPORT INFORMATION
  Report Type: 
  Country: None (occurrence: None)
  Receive Date: 20100920
  Receipt Date: 20100407
  Transmission Date: 20110219
  Serious: No
  Sender: FDA-Public Use
  Company Number: US-ASTRAZENECA-2010SE11743

PATIENT
  Age: 23042 Day
  Sex: Male
  Weight: 83.9 kg

DRUGS (3)
  1. SEROQUEL XR [Suspect]
     Route: 048
  2. SIMVASTATIN [Concomitant]
  3. DEPAKOTE [Concomitant]
     Indication: BIPOLAR DISORDER

REACTIONS (2)
  - ALOPECIA [None]
  - WEIGHT INCREASED [None]
